FAERS Safety Report 13343456 (Version 1)
Quarter: 2017Q1

REPORT INFORMATION
  Report Type: Spontaneous
  Country: US (occurrence: US)
  Receive Date: 20170316
  Receipt Date: 20170316
  Transmission Date: 20170428
  Serious: No
  Sender: FDA-Public Use
  Company Number: US-BAYER-2017-049694

PATIENT
  Age: 19 Year
  Sex: Female

DRUGS (1)
  1. KYLEENA [Suspect]
     Active Substance: LEVONORGESTREL
     Indication: CONTRACEPTION
     Dosage: 17.5 MCG/24HR, CONT
     Route: 015
     Dates: start: 20161208

REACTIONS (4)
  - Vaginal haemorrhage [Recovered/Resolved]
  - Vaginal haemorrhage [None]
  - Vaginal discharge [Recovered/Resolved]
  - Device expulsion [None]

NARRATIVE: CASE EVENT DATE: 201701
